FAERS Safety Report 9892201 (Version 1)
Quarter: 2014Q1

REPORT INFORMATION
  Report Type: Spontaneous
  Country: IT (occurrence: IT)
  Receive Date: 20140212
  Receipt Date: 20140212
  Transmission Date: 20141002
  Serious: Yes (Hospitalization)
  Sender: FDA-Public Use
  Company Number: IT-BAYER-2014-019458

PATIENT
  Age: 73 Year
  Sex: Male

DRUGS (3)
  1. CARDIOASPIRIN [Suspect]
     Indication: PROPHYLAXIS
     Dosage: DAILY DOSE 100 MG
     Route: 048
     Dates: start: 20120101, end: 20131214
  2. SIMVASTATIN [Concomitant]
     Dosage: DAILY DOSE 1 DF
     Route: 048
  3. PARIET [Concomitant]
     Dosage: DAILY DOSE 1 DF
     Route: 048

REACTIONS (2)
  - Subdural haematoma [Recovering/Resolving]
  - Hemiparesis [Recovering/Resolving]
